FAERS Safety Report 6236651-1 (Version None)
Quarter: 2009Q2

REPORT INFORMATION
  Report Type: 
  Country: None (occurrence: None)
  Receive Date: 20090619
  Receipt Date: 20081124
  Transmission Date: 20091009
  Serious: No
  Sender: FDA-Public Use
  Company Number: US-ASTRAZENECA-2008UW26322

PATIENT
  Age: 665 Month
  Sex: Female

DRUGS (7)
  1. ATACAND [Suspect]
     Indication: HYPERTENSION
     Route: 048
     Dates: start: 20060901, end: 20080901
  2. RHINOCORT [Concomitant]
     Indication: HYPERTENSION
     Route: 045
  3. NEXIUM [Concomitant]
     Route: 048
  4. LOPRESSOR/HCTZ [Concomitant]
  5. BUSPAR [Concomitant]
  6. RISPERDAL [Concomitant]
  7. LEVOTHROID [Concomitant]

REACTIONS (2)
  - BLOOD PRESSURE INCREASED [None]
  - DRUG INEFFECTIVE [None]
